FAERS Safety Report 6184154-5 (Version None)
Quarter: 2009Q2

REPORT INFORMATION
  Report Type: 
  Country: None (occurrence: None)
  Receive Date: 20090506
  Receipt Date: 20090506
  Transmission Date: 20091009
  Serious: Yes (Other)
  Sender: FDA-Public Use
  Company Number: None

PATIENT
  Age: 48 Year
  Sex: Female
  Weight: 86.1834 kg

DRUGS (3)
  1. FLUROX COMFORTMAX (FLUROESCEIN AND BENOXINATE) [Suspect]
     Dosage: ONE DROP
     Route: 047
     Dates: start: 20090420, end: 20090420
  2. AK-DILATE (PHENLYEPHRINE) [Suspect]
     Dosage: ONE DROP
     Route: 047
     Dates: start: 20090420, end: 20090420
  3. TROPICACYL [Suspect]

REACTIONS (3)
  - BLOOD PRESSURE DECREASED [None]
  - DIZZINESS [None]
  - NAUSEA [None]
